FAERS Safety Report 12370666 (Version 1)
Quarter: 2016Q2

REPORT INFORMATION
  Report Type: Other
  Country: GB (occurrence: GB)
  Receive Date: 20160516
  Receipt Date: 20160516
  Transmission Date: 20160815
  Serious: Yes (Other)
  Sender: FDA-Public Use
  Company Number: GB-MYLANLABS-2016M1019171

PATIENT

DRUGS (6)
  1. INDAPAMIDE. [Suspect]
     Active Substance: INDAPAMIDE
     Dosage: UNK
     Dates: start: 20160425
  2. IBUPROFEN. [Concomitant]
     Active Substance: IBUPROFEN
     Dosage: APPLY 2-3 TIMES A DAY
     Dates: start: 20160120
  3. RANITIDINE. [Concomitant]
     Active Substance: RANITIDINE
     Dosage: 2 DF, BID
     Dates: start: 20150527
  4. AMITRIPTYLINE HYDROCHLORIDE. [Concomitant]
     Active Substance: AMITRIPTYLINE HYDROCHLORIDE
     Dosage: 5 MG, QD (AT NIGHT (HALF TABLET))
     Dates: start: 20160331, end: 20160414
  5. COCODAMOL [Concomitant]
     Active Substance: ACETAMINOPHEN\CODEINE PHOSPHATE
     Dosage: 2 DF, UNK (FOUR TIMES DAILY)
     Dates: start: 20150527
  6. DOMPERIDONE [Concomitant]
     Active Substance: DOMPERIDONE
     Dosage: 1 DF, UNK (THREE TIMES DAILY)
     Dates: start: 20151214

REACTIONS (2)
  - Pruritus [Recovering/Resolving]
  - Skin burning sensation [Recovering/Resolving]

NARRATIVE: CASE EVENT DATE: 20160425
